FAERS Safety Report 14261327 (Version 1)
Quarter: 2017Q4

REPORT INFORMATION
  Report Type: Report from Study
  Country: ZA (occurrence: ZA)
  Receive Date: 20171208
  Receipt Date: 20171208
  Transmission Date: 20180321
  Serious: Yes (Death)
  Sender: FDA-Public Use
  Company Number: PHHY2017ZA181745

PATIENT
  Age: 68 Year
  Sex: Male

DRUGS (5)
  1. PANTOCID [Concomitant]
     Indication: ULCER
     Dosage: 40 MG, UNK
     Route: 048
     Dates: start: 20171110
  2. HUMALOG [Concomitant]
     Active Substance: INSULIN LISPRO
     Indication: DIABETES MELLITUS
     Dosage: 25 OT, UNK
     Route: 048
     Dates: start: 20171110
  3. MENGEN [Concomitant]
     Active Substance: METFORMIN HYDROCHLORIDE
     Indication: DIABETES MELLITUS
     Dosage: 1000 MG, UNK
     Route: 048
     Dates: start: 20171110
  4. COVOCORT [Concomitant]
     Indication: PRODUCT USED FOR UNKNOWN INDICATION
     Dosage: 10 MG, UNK
     Route: 048
     Dates: start: 20171110
  5. TAREG [Suspect]
     Active Substance: VALSARTAN
     Indication: HYPERTENSION
     Dosage: 160 MG, UNK
     Route: 048
     Dates: start: 20171110

REACTIONS (1)
  - Death [Fatal]

NARRATIVE: CASE EVENT DATE: 20171110
